FAERS Safety Report 4490357-8 (Version None)
Quarter: 2004Q4

REPORT INFORMATION
  Report Type: 
  Country: None (occurrence: None)
  Receive Date: 20041028
  Receipt Date: 20041018
  Transmission Date: 20050328
  Serious: Yes (Other)
  Sender: FDA-Public Use
  Company Number: STA-AE-04-037

PATIENT
  Age: 25 Year
  Sex: Male

DRUGS (5)
  1. SELEGILINE HCL [Suspect]
     Dosage: 3 X 10 MG/DAY
  2. LEVODOPA (L-DOPA) + BENSERAZIDE [Concomitant]
  3. BROMOCRIPTINE MESYLATE [Concomitant]
  4. BACLOFEN [Concomitant]
  5. BOTULINUM TOXIN INJECTIONS [Concomitant]

REACTIONS (13)
  - ABNORMAL BEHAVIOUR [None]
  - AFFECT LABILITY [None]
  - AGGRESSION [None]
  - ANOREXIA NERVOSA [None]
  - COMMUNICATION DISORDER [None]
  - CONDITION AGGRAVATED [None]
  - DISTURBANCE IN ATTENTION [None]
  - DRUG DEPENDENCE [None]
  - DYSKINESIA [None]
  - HUNTINGTON'S CHOREA [None]
  - IMPULSIVE BEHAVIOUR [None]
  - INSOMNIA [None]
  - MENTAL DISORDER [None]
